FAERS Safety Report 8251048-0 (Version None)
Quarter: 2012Q2

REPORT INFORMATION
  Report Type: 
  Country: None (occurrence: None)
  Receive Date: 20120402
  Receipt Date: 20120319
  Transmission Date: 20120825
  Serious: Yes (Death, Other)
  Sender: FDA-Public Use
  Company Number: DE-CELGENEUS-062-50794-10020941

PATIENT
  Age: 71 Year
  Sex: Female
  Weight: 66 kg

DRUGS (6)
  1. CYTARABINE [Concomitant]
     Dosage: 175 MILLIGRAM
     Route: 041
     Dates: start: 20100207, end: 20100213
  2. DAUNORUBICIN HCL [Concomitant]
     Dosage: 60 MILLIGRAM/MILLILITERS
     Route: 041
     Dates: start: 20100209, end: 20100211
  3. GRANISETRON HYDROCHLORIDE [Concomitant]
     Dosage: 3 MILLIGRAM
     Route: 041
     Dates: start: 20100207, end: 20100213
  4. FOX'S SOLUTION [Concomitant]
     Dosage: 1000 MILLILITER
     Route: 041
     Dates: start: 20100207, end: 20100213
  5. VIDAZA [Suspect]
     Dosage: 131 MILLIGRAM
     Route: 041
     Dates: start: 20100201, end: 20100205
  6. SODIUM CHLORIDE [Concomitant]
     Dosage: 1000 MILLILITER
     Route: 041
     Dates: start: 20100207, end: 20100213

REACTIONS (11)
  - NEUTROPENIA [None]
  - OEDEMA PERIPHERAL [None]
  - PYREXIA [None]
  - VOMITING [None]
  - SEPSIS [None]
  - THROMBOCYTOPENIA [None]
  - BLADDER PAIN [None]
  - DEEP VEIN THROMBOSIS [None]
  - LEUKOPENIA [None]
  - PNEUMONIA [None]
  - VULVOVAGINAL CANDIDIASIS [None]
